FAERS Safety Report 10191793 (Version 1)
Quarter: 2014Q2

REPORT INFORMATION
  Report Type: Spontaneous
  Country: US (occurrence: None)
  Receive Date: 20140522
  Receipt Date: 20140522
  Transmission Date: 20141212
  Serious: Yes (Hospitalization)
  Sender: FDA-Public Use
  Company Number: None

PATIENT
  Age: 67 Year
  Sex: Male
  Weight: 69.5 kg

DRUGS (8)
  1. IBRUTINIB [Suspect]
     Indication: CHRONIC LYMPHOCYTIC LEUKAEMIA
     Dosage: 3 CAPSULES (420 MG), QD, ORAL
     Route: 048
     Dates: start: 20140322
  2. OMEPRAZOLE [Concomitant]
  3. AMLODIPINE 10 MG [Concomitant]
  4. CITALOPRAM 20 MG [Concomitant]
  5. ALPRAZOLAM 0.5 MG PUREPAC [Concomitant]
  6. POTASSIUM CHLORIDE [Concomitant]
  7. RANITIDINE 150 MG PEVA MFG [Concomitant]
  8. ZOLPIDEM [Concomitant]

REACTIONS (6)
  - Asthenia [None]
  - Fatigue [None]
  - Blood pressure decreased [None]
  - Tumour lysis syndrome [None]
  - Urinary tract infection pseudomonal [None]
  - Gout [None]
